FAERS Safety Report 20711428 (Version 1)
Quarter: 2022Q2

REPORT INFORMATION
  Report Type: Spontaneous
  Country: US (occurrence: None)
  Receive Date: 20220414
  Receipt Date: 20220414
  Transmission Date: 20220721
  Serious: Yes (Death)
  Sender: FDA-Public Use
  Company Number: None

PATIENT
  Age: 56 Year
  Sex: Male

DRUGS (1)
  1. HUMIRA [Suspect]
     Active Substance: ADALIMUMAB
     Dosage: OTHER QUANTITY : 40MG/0.4ML;?OTHER FREQUENCY : OTHER;?
     Route: 058
     Dates: start: 20191120, end: 20220307

REACTIONS (1)
  - Death [None]

NARRATIVE: CASE EVENT DATE: 20220412
